FAERS Safety Report 15628960 (Version 1)
Quarter: 2018Q4

REPORT INFORMATION
  Report Type: Report from Study
  Country: US (occurrence: US)
  Receive Date: 20181116
  Receipt Date: 20181116
  Transmission Date: 20190205
  Serious: Yes (Other)
  Sender: FDA-Public Use
  Company Number: US-TESARO-2018-TSO1784-US

PATIENT
  Age: 76 Year
  Sex: Female
  Weight: 93.42 kg

DRUGS (2)
  1. ZEJULA [Suspect]
     Active Substance: NIRAPARIB
     Dosage: 200 MG, QPM WITHOUT FOOD, 2 CAPSULES BY MOUTH EVERY DAY
     Route: 048
  2. ZEJULA [Suspect]
     Active Substance: NIRAPARIB
     Indication: MALIGNANT PERITONEAL NEOPLASM
     Dosage: 300 MG, UNK
     Route: 048
     Dates: start: 201709

REACTIONS (5)
  - Red blood cell count decreased [Unknown]
  - Atrial fibrillation [Unknown]
  - Gait disturbance [Unknown]
  - Muscular weakness [Unknown]
  - Nausea [Unknown]

NARRATIVE: CASE EVENT DATE: 201709
